FAERS Safety Report 24036390 (Version 1)
Quarter: 2024Q3

REPORT INFORMATION
  Report Type: Report from Study
  Country: CZ (occurrence: CZ)
  Receive Date: 20240701
  Receipt Date: 20240701
  Transmission Date: 20241017
  Serious: Yes (Death, Life-Threatening, Hospitalization, Other)
  Sender: BAXTER
  Company Number: CZ-BAXTER-2023BAX028423

PATIENT
  Age: 76 Year
  Sex: Male
  Weight: 85 kg

DRUGS (37)
  1. CYCLOPHOSPHAMIDE [Suspect]
     Active Substance: CYCLOPHOSPHAMIDE
     Indication: Diffuse large B-cell lymphoma
     Dosage: 1515.7 MG ONCE, EVERY 3 WEEK
     Route: 042
     Dates: start: 20230613, end: 20230711
  2. DOXORUBICIN [Suspect]
     Active Substance: DOXORUBICIN
     Indication: Diffuse large B-cell lymphoma
     Dosage: 101.05 MG, EVERY 3 WEEK
     Route: 042
     Dates: start: 20230613, end: 20230711
  3. EPCORITAMAB [Suspect]
     Active Substance: EPCORITAMAB
     Indication: Diffuse large B-cell lymphoma
     Dosage: 48 MG C1 (STEP-UP), CYCLES 2 - 4 (21-DAY CYCLE, WEEKLY DOSE), C5 - 8 (21-DAY CYCLE, EVERY 3, WEEKS)
     Route: 058
     Dates: start: 20230613, end: 20230618
  4. EPCORITAMAB [Suspect]
     Active Substance: EPCORITAMAB
     Dosage: 0.8 MG C1D8, INTERMEDIATE DOSE, TOTAL
     Route: 058
     Dates: start: 20230620, end: 20230620
  5. EPCORITAMAB [Suspect]
     Active Substance: EPCORITAMAB
     Dosage: 48 MG FULL DOSE C1, D15, TOTAL
     Route: 058
     Dates: start: 20230627, end: 20230627
  6. EPCORITAMAB [Suspect]
     Active Substance: EPCORITAMAB
     Dosage: 48 MG, EVERY 1 WEEKS
     Route: 058
     Dates: start: 20230711, end: 20230718
  7. EPCORITAMAB [Suspect]
     Active Substance: EPCORITAMAB
     Dosage: 48 MG C2, D15, EVERY 1 WEEKS
     Route: 058
     Dates: start: 20230808, end: 20230808
  8. VINCRISTINE [Suspect]
     Active Substance: VINCRISTINE
     Indication: Diffuse large B-cell lymphoma
     Dosage: 2 MG, EVERY 3 WEEK
     Route: 042
     Dates: start: 20230613, end: 20230711
  9. RITUXIMAB [Suspect]
     Active Substance: RITUXIMAB
     Indication: Diffuse large B-cell lymphoma
     Dosage: 757.85 MG, EVERY 3 WEEK
     Route: 042
     Dates: start: 20230613, end: 20230711
  10. PREDNISONE [Suspect]
     Active Substance: PREDNISONE
     Indication: Diffuse large B-cell lymphoma
     Dosage: 100 MG C1-6, DAY 1-5, EVERY 1 DAYS
     Route: 048
     Dates: start: 20230613, end: 20230715
  11. TAMSULOSIN HYDROCHLORIDE [Concomitant]
     Active Substance: TAMSULOSIN HYDROCHLORIDE
     Indication: Benign prostatic hyperplasia
     Dosage: 0.4 MG, EVERY 1 DAY, START DATE: 2020
     Route: 065
  12. VALACYCLOVIR HYDROCHLORIDE [Concomitant]
     Active Substance: VALACYCLOVIR HYDROCHLORIDE
     Indication: Antiviral prophylaxis
     Dosage: 500 MG, EVERY 1 DAYS
     Route: 065
     Dates: start: 20230609
  13. ALLOPURINOL [Concomitant]
     Active Substance: ALLOPURINOL
     Indication: Prophylaxis
     Dosage: 300 MG, EVERY 1 DAYS
     Route: 065
     Dates: start: 20230609
  14. SULFAMETHOXAZOLE\TRIMETHOPRIM [Concomitant]
     Active Substance: SULFAMETHOXAZOLE\TRIMETHOPRIM
     Indication: Infection prophylaxis
     Dosage: 1 DOSAGE FORM SULFAMETHOXAZOLE 800 MG/TRIMETHOPRIM 160 MG, 2/DAYS
     Route: 065
     Dates: start: 20230610, end: 20230719
  15. BISOPROLOL [Concomitant]
     Active Substance: BISOPROLOL\BISOPROLOL FUMARATE
     Indication: Hypertension
     Dosage: 2.5 MG, EVERY 1 DAYS
     Route: 065
     Dates: start: 20230620, end: 20230719
  16. HUMULIN R [Concomitant]
     Active Substance: INSULIN HUMAN
     Indication: Diabetes mellitus
     Dosage: 30 OD UNIT, EVERY 1 DAYS
     Route: 065
     Dates: start: 20230720, end: 20230810
  17. PERINDOPRIL [Concomitant]
     Active Substance: PERINDOPRIL
     Indication: Hypertension
     Dosage: 2 MG, EVERY 1 DAYS
     Route: 065
     Dates: start: 20030610, end: 20230708
  18. CONTROLOC [Concomitant]
     Active Substance: PANTOPRAZOLE SODIUM
     Indication: Prophylaxis against gastrointestinal ulcer
     Dosage: 40 MG, EVERY 1 DAYS
     Route: 065
     Dates: start: 20230610, end: 20230718
  19. CONTROLOC [Concomitant]
     Active Substance: PANTOPRAZOLE SODIUM
     Dosage: 80 ML, AS NECESSARY
     Route: 065
     Dates: start: 20230719
  20. TOCILIZUMAB [Concomitant]
     Active Substance: TOCILIZUMAB
     Indication: Prophylaxis
     Dosage: 800 MG, AS NECESSARY
     Route: 065
     Dates: start: 20230704
  21. TOCILIZUMAB [Concomitant]
     Active Substance: TOCILIZUMAB
     Indication: Cytomegalovirus syndrome
  22. BISOPROLOL FUMARATE [Concomitant]
     Active Substance: BISOPROLOL FUMARATE
     Indication: Hypertension
     Dosage: 2.5 MG, EVERY 1 DAYS
     Route: 065
     Dates: start: 20230614
  23. FILGRASTIM [Concomitant]
     Active Substance: FILGRASTIM
     Indication: Neutropenia
     Dosage: 48 IU, EVERY 1 DAYS
     Route: 065
     Dates: start: 20230718, end: 20230723
  24. ZALDIAR [Concomitant]
     Active Substance: ACETAMINOPHEN\TRAMADOL HYDROCHLORIDE
     Indication: Chronic disease
     Dosage: 1 DOSAGE FORM, ONCE, AS NECESSARY
     Route: 065
     Dates: start: 20230626
  25. ZALDIAR [Concomitant]
     Active Substance: ACETAMINOPHEN\TRAMADOL HYDROCHLORIDE
     Indication: Spinal pain
  26. MEROPENEM [Concomitant]
     Active Substance: MEROPENEM
     Indication: Urosepsis
     Dosage: 2 G, INTERMITTENT
     Route: 065
     Dates: start: 20230705, end: 20230711
  27. MEROPENEM [Concomitant]
     Active Substance: MEROPENEM
     Indication: Infection prophylaxis
     Dosage: 2 G, INTERMITTENT
     Route: 065
     Dates: start: 20230705, end: 20230707
  28. MEROPENEM [Concomitant]
     Active Substance: MEROPENEM
     Dosage: 2 G, AS NECESSARY
     Route: 065
     Dates: start: 20230708, end: 20230711
  29. TAMSULOSIN HYDROCHLORIDE [Concomitant]
     Active Substance: TAMSULOSIN HYDROCHLORIDE
     Indication: Benign prostatic hyperplasia
     Dosage: 0.4 MG, EVERY 1 DAYS, START DATE: 2020
     Route: 065
  30. DIAZEPAM [Concomitant]
     Active Substance: DIAZEPAM
     Indication: Insomnia
     Dosage: 5 MG, AS NECESSARY
     Dates: start: 20230726, end: 20230810
  31. OMEPRAZOLE [Concomitant]
     Active Substance: OMEPRAZOLE
     Indication: Dyspepsia
     Dosage: 20 MG, 2/DAYS, START DATE: FEB-2023
     Route: 065
     Dates: end: 20230719
  32. NADROPARIN CALCIUM [Concomitant]
     Active Substance: NADROPARIN CALCIUM
     Indication: Thrombosis prophylaxis
     Dosage: 0.4 ML, EVERY 1 DAYS
     Route: 065
     Dates: start: 20230720, end: 20230810
  33. ANIDULAFUNGIN [Concomitant]
     Active Substance: ANIDULAFUNGIN
     Indication: Antifungal prophylaxis
     Dosage: 100 MG, EVERY 1 DAYS
     Route: 065
     Dates: start: 20230722, end: 20230810
  34. ACYCLOVIR [Concomitant]
     Active Substance: ACYCLOVIR
     Indication: Antiviral prophylaxis
     Dosage: 500 MG, EVERY 1 DAYS
     Route: 065
     Dates: start: 20230720
  35. TRAMADOL [Concomitant]
     Active Substance: TRAMADOL\TRAMADOL HYDROCHLORIDE
     Indication: Spinal pain
     Dosage: 100 MG, AS NECESSARY
     Route: 065
     Dates: start: 20230719
  36. DEXAMETHASONE [Concomitant]
     Active Substance: DEXAMETHASONE
     Indication: Prophylaxis
     Dosage: PREMEDICATION FOR STUDY DRUGS
     Route: 065
     Dates: start: 20230620
  37. DEXAMETHASONE [Concomitant]
     Active Substance: DEXAMETHASONE
     Indication: Cytomegalovirus syndrome
     Dosage: PREMEDICATION FOR STUDY DRUGS
     Route: 065
     Dates: start: 20230621

REACTIONS (3)
  - Pneumothorax [Not Recovered/Not Resolved]
  - Septic shock [Fatal]
  - Pseudomonal sepsis [Recovered/Resolved]

NARRATIVE: CASE EVENT DATE: 20230718
